FAERS Safety Report 9155923 (Version 1)
Quarter: 2013Q1

REPORT INFORMATION
  Report Type: Spontaneous
  Country: CN (occurrence: CN)
  Receive Date: 20130311
  Receipt Date: 20130311
  Transmission Date: 20140127
  Serious: Yes (Hospitalization, Other)
  Sender: FDA-Public Use
  Company Number: PHHY2012CN127878

PATIENT
  Age: 8 Year
  Sex: Male
  Weight: 22 kg

DRUGS (2)
  1. TEGRETOL [Suspect]
     Indication: EPILEPSY
     Dosage: 0.15 G, BID
     Route: 048
     Dates: start: 20090112, end: 20090505
  2. VALPROIC ACID [Suspect]
     Indication: EPILEPSY
     Dosage: 0.1 G, TID
     Route: 048

REACTIONS (3)
  - Vomiting [Recovered/Resolved]
  - Status epilepticus [Recovered/Resolved]
  - Liver function test abnormal [Recovered/Resolved]
